FAERS Safety Report 6862380-7 (Version None)
Quarter: 2010Q3

REPORT INFORMATION
  Report Type: 
  Country: None (occurrence: None)
  Receive Date: 20100716
  Receipt Date: 20100706
  Transmission Date: 20110219
  Serious: Yes (Other)
  Sender: FDA-Public Use
  Company Number: 2010EU002555

PATIENT
  Age: 41 Year
  Sex: Male
  Weight: 110 kg

DRUGS (4)
  1. PROGRAF [Suspect]
     Indication: LIVER TRANSPLANT
     Dosage: 1.5 MG/DAY; /D, ORAL; 0.5 MG, TID, ORAL
     Route: 048
  2. CELLCEPT [Concomitant]
  3. PANTAZOL (PANTOPRAZOLE SODIUM) [Concomitant]
  4. ATACAND [Concomitant]

REACTIONS (1)
  - BURNING SENSATION [None]
